FAERS Safety Report 18079772 (Version 3)
Quarter: 2020Q3

REPORT INFORMATION
  Report Type: Spontaneous
  Country: CA (occurrence: CA)
  Receive Date: 20200728
  Receipt Date: 20200810
  Transmission Date: 20201103
  Serious: Yes (Other)
  Sender: FDA-Public Use
  Company Number: CA-PFIZER INC-2020261299

PATIENT
  Age: 61 Year
  Sex: Female

DRUGS (2)
  1. DILANTIN [Suspect]
     Active Substance: PHENYTOIN
     Dosage: 30 MG, UNK
  2. DILANTIN [Suspect]
     Active Substance: PHENYTOIN
     Dosage: 100 MG, UNK

REACTIONS (15)
  - Seizure [Not Recovered/Not Resolved]
  - Product formulation issue [Unknown]
  - Gastrointestinal disorder [Unknown]
  - Pyrexia [Unknown]
  - Flushing [Not Recovered/Not Resolved]
  - Photosensitivity reaction [Unknown]
  - Drug hypersensitivity [Unknown]
  - Coagulopathy [Unknown]
  - Somnolence [Unknown]
  - Drug level decreased [Unknown]
  - Nausea [Unknown]
  - Cardiac disorder [Not Recovered/Not Resolved]
  - Toxicity to various agents [Unknown]
  - Dysstasia [Unknown]
  - Blood glucose decreased [Unknown]

NARRATIVE: CASE EVENT DATE: 20200714
